FAERS Safety Report 14000390 (Version 1)
Quarter: 2017Q3

REPORT INFORMATION
  Report Type: Spontaneous
  Country: SE (occurrence: SE)
  Receive Date: 20170922
  Receipt Date: 20170922
  Transmission Date: 20171128
  Serious: Yes (Other)
  Sender: FDA-Public Use
  Company Number: PHHY2017SE136597

PATIENT
  Age: 76 Year
  Sex: Female

DRUGS (1)
  1. BUPRENORPHINE SANDOZ [Suspect]
     Active Substance: BUPRENORPHINE
     Indication: PAIN
     Dosage: 20 MG, UNK
     Route: 065
     Dates: end: 201703

REACTIONS (5)
  - Fall [Unknown]
  - Amnesia [Unknown]
  - Overdose [Unknown]
  - Tremor [Unknown]
  - Neuropathy peripheral [Unknown]

NARRATIVE: CASE EVENT DATE: 201701
